FAERS Safety Report 20712975 (Version 2)
Quarter: 2022Q2

REPORT INFORMATION
  Report Type: Report from Study
  Country: DE (occurrence: DE)
  Receive Date: 20220415
  Receipt Date: 20220502
  Transmission Date: 20220721
  Serious: Yes (Hospitalization, Other)
  Sender: FDA-Public Use
  Company Number: DE-AUROBINDO-AUR-APL-2022-012794

PATIENT
  Age: 65 Year
  Sex: Female

DRUGS (1)
  1. SIMVASTATIN [Suspect]
     Active Substance: SIMVASTATIN
     Indication: Product used for unknown indication
     Dosage: UNK
     Route: 065

REACTIONS (3)
  - Immune-mediated myositis [Recovered/Resolved with Sequelae]
  - Muscular weakness [Recovering/Resolving]
  - Blood creatine phosphokinase increased [Recovering/Resolving]
